FAERS Safety Report 9691822 (Version 1)
Quarter: 2013Q4

REPORT INFORMATION
  Report Type: Report from Study
  Country: DE (occurrence: DE)
  Receive Date: 20131115
  Receipt Date: 20131115
  Transmission Date: 20140711
  Serious: Yes (Hospitalization)
  Sender: FDA-Public Use
  Company Number: DE-TEVA-443591GER

PATIENT
  Age: 50 Year
  Sex: Female
  Weight: 75 kg

DRUGS (2)
  1. RATIOGRASTIM [Suspect]
     Indication: NEUTROPENIA
     Dosage: 48000000 IU (INTERNATIONAL UNIT) DAILY;
     Route: 058
     Dates: start: 20131028, end: 20131030
  2. DOCETAXEL [Suspect]
     Indication: BREAST CANCER FEMALE
     Dates: start: 20131025, end: 20131025

REACTIONS (1)
  - Febrile neutropenia [Recovered/Resolved]
